FAERS Safety Report 4765282-5 (Version None)
Quarter: 2005Q3

REPORT INFORMATION
  Report Type: 
  Country: None (occurrence: None)
  Receive Date: 20050906
  Receipt Date: 20050822
  Transmission Date: 20060218
  Serious: Yes (Hospitalization)
  Sender: FDA-Public Use
  Company Number: 2005117945

PATIENT
  Age: 23 Year
  Sex: Male

DRUGS (1)
  1. CELECOXIB (CELECOXIB) [Suspect]
     Indication: ILL-DEFINED DISORDER
     Dosage: 400 MG (200 MG, 2 IN 1 D)

REACTIONS (2)
  - HYPERKALAEMIA [None]
  - HYPOALDOSTERONISM [None]
